FAERS Safety Report 17402169 (Version 1)
Quarter: 2020Q1

REPORT INFORMATION
  Report Type: Spontaneous
  Country: US (occurrence: US)
  Receive Date: 20200211
  Receipt Date: 20200211
  Transmission Date: 20200409
  Serious: No
  Sender: FDA-Public Use
  Company Number: US-PFIZER INC-2020058557

PATIENT
  Age: 65 Year
  Sex: Male
  Weight: 122.81 kg

DRUGS (1)
  1. ZOLOFT [Suspect]
     Active Substance: SERTRALINE HYDROCHLORIDE
     Dosage: 200 MG, DAILY

REACTIONS (3)
  - Agitation [Unknown]
  - Pain [Unknown]
  - Impulsive behaviour [Unknown]
